FAERS Safety Report 5695015-X (Version None)
Quarter: 2008Q2

REPORT INFORMATION
  Report Type: 
  Country: None (occurrence: None)
  Receive Date: 20080404
  Receipt Date: 20080327
  Transmission Date: 20081010
  Serious: Yes (Hospitalization)
  Sender: FDA-Public Use
  Company Number: CH-PFIZER INC-2008027229

PATIENT
  Age: 68 Year
  Sex: Female
  Weight: 70 kg

DRUGS (6)
  1. CELEBREX [Suspect]
     Indication: BACK PAIN
     Route: 048
     Dates: start: 20071201, end: 20080122
  2. DIOVAN HCT [Concomitant]
     Indication: ESSENTIAL HYPERTENSION
     Route: 048
  3. DILTIAZEM [Concomitant]
     Indication: ESSENTIAL HYPERTENSION
     Dosage: DAILY DOSE:180MG
     Route: 048
  4. ASPIRIN [Concomitant]
     Dosage: DAILY DOSE:100MG
     Route: 048
  5. SIMVASTATIN [Concomitant]
     Indication: HYPERCHOLESTEROLAEMIA
     Dosage: DAILY DOSE:40MG
     Route: 048
  6. ELTROXIN [Concomitant]

REACTIONS (3)
  - LOSS OF CONSCIOUSNESS [None]
  - PURPURA [None]
  - TYPE I HYPERSENSITIVITY [None]
